FAERS Safety Report 10018373 (Version 1)
Quarter: 2014Q1

REPORT INFORMATION
  Report Type: Spontaneous
  Country: CN (occurrence: None)
  Receive Date: 20140312
  Receipt Date: 20140312
  Transmission Date: 20141002
  Serious: Yes (Hospitalization, Other)
  Sender: FDA-Public Use
  Company Number: IMP_07498_2014

PATIENT
  Age: 62 Year
  Sex: Male

DRUGS (5)
  1. BUPROPION [Suspect]
     Indication: BIPOLAR I DISORDER
     Dosage: DAY, TITRATION UP PERFORMED),
     Dates: start: 201206, end: 2012
  2. QUETIAPINE (QUETIAPINE) [Suspect]
     Indication: BIPOLAR I DISORDER
     Dosage: MG/D, ADDED ON DAY 8, TITRATION UP PERFORMED
     Dates: end: 2012
  3. RISPERIDONE (RISPERIDONE) [Suspect]
     Indication: BIPOLAR I DISORDER
     Dosage: MG/DAY, TITRATION UP PERFORMED
     Dates: end: 2012
  4. LAMOTRIGINE (LAMOTRIGINE) [Suspect]
     Indication: BIPOLAR I DISORDER
     Dosage: MG/DAY, TITRATION UP PERFORMED
     Dates: start: 201206, end: 2012
  5. ESCITALOPRAM (ESCITALOPRAM) [Suspect]
     Indication: BIPOLAR I DISORDER
     Dosage: MG/DAY

REACTIONS (12)
  - Drug interaction [None]
  - Delirium [None]
  - Hallucination, auditory [None]
  - Insomnia [None]
  - Dry mouth [None]
  - Dry skin [None]
  - Abdominal discomfort [None]
  - Constipation [None]
  - Confusional state [None]
  - Disorientation [None]
  - Hallucination, visual [None]
  - Agitation [None]
